FAERS Safety Report 18120971 (Version 11)
Quarter: 2021Q4

REPORT INFORMATION
  Report Type: Report from Study
  Country: NL (occurrence: NL)
  Receive Date: 20200807
  Receipt Date: 20211124
  Transmission Date: 20220303
  Serious: Yes (Other)
  Sender: FDA-Public Use
  Company Number: NL-ABBVIE-19S-114-2820649-00

PATIENT
  Sex: Female

DRUGS (5)
  1. CARBIDOPA\LEVODOPA [Suspect]
     Active Substance: CARBIDOPA\LEVODOPA
     Indication: Parkinson^s disease
     Dosage: MD: 5.0 ML, CD: 5.4 ML/HR, ED: 1.2 ML, CND: 4.0 ML/HR
     Route: 050
     Dates: start: 20160914
  2. CARBIDOPA\LEVODOPA [Suspect]
     Active Substance: CARBIDOPA\LEVODOPA
     Dosage: MD 5.0, ED 1.2, CD 5.4, CDN 4.0,REMAINS AT 24 HOURS
     Route: 050
  3. CARBIDOPA\LEVODOPA [Suspect]
     Active Substance: CARBIDOPA\LEVODOPA
     Dosage: MD: 5.0 ML, CD: 5.3 ML/HR, ED: 1.2 ML, CND: 4.1 ML/HR
     Route: 050
  4. LYRICA [Concomitant]
     Active Substance: PREGABALIN
     Indication: Neuropathy peripheral
  5. PREGABALIN [Concomitant]
     Active Substance: PREGABALIN
     Indication: Neuropathy peripheral

REACTIONS (41)
  - Spleen operation [Unknown]
  - Memory impairment [Not Recovered/Not Resolved]
  - Tension [Not Recovered/Not Resolved]
  - Hypermobility syndrome [Unknown]
  - Stress [Recovering/Resolving]
  - Cognitive disorder [Unknown]
  - Anger [Recovering/Resolving]
  - Pain in extremity [Not Recovered/Not Resolved]
  - Restlessness [Unknown]
  - Loss of personal independence in daily activities [Not Recovered/Not Resolved]
  - Poor quality sleep [Recovered/Resolved]
  - Vertigo [Not Recovered/Not Resolved]
  - Suspiciousness [Not Recovered/Not Resolved]
  - Delirium [Not Recovered/Not Resolved]
  - Head discomfort [Not Recovered/Not Resolved]
  - Abnormal dreams [Recovered/Resolved]
  - Delusion [Recovering/Resolving]
  - Muscle spasms [Not Recovered/Not Resolved]
  - Dystonia [Not Recovered/Not Resolved]
  - Weight increased [Not Recovered/Not Resolved]
  - Fall [Not Recovered/Not Resolved]
  - On and off phenomenon [Recovering/Resolving]
  - Neuropathy peripheral [Not Recovered/Not Resolved]
  - Constipation [Not Recovered/Not Resolved]
  - Muscle rigidity [Not Recovered/Not Resolved]
  - Bradykinesia [Not Recovered/Not Resolved]
  - Dyskinesia [Not Recovered/Not Resolved]
  - Hallucination [Recovering/Resolving]
  - Hyperkinesia [Recovered/Resolved]
  - Anxiety [Recovering/Resolving]
  - Depressed mood [Not Recovered/Not Resolved]
  - Abnormal faeces [Not Recovered/Not Resolved]
  - Speech disorder [Not Recovered/Not Resolved]
  - Stress [Not Recovered/Not Resolved]
  - On and off phenomenon [Not Recovered/Not Resolved]
  - Abdominal pain [Not Recovered/Not Resolved]
  - Eructation [Unknown]
  - Abdominal distension [Unknown]
  - Unevaluable event [Unknown]
  - General physical health deterioration [Unknown]
  - Device dislocation [Recovered/Resolved]
